FAERS Safety Report 6652145-3 (Version None)
Quarter: 2010Q1

REPORT INFORMATION
  Report Type: 
  Country: None (occurrence: None)
  Receive Date: 20100325
  Receipt Date: 20100316
  Transmission Date: 20100710
  Serious: Yes (Death, Hospitalization)
  Sender: FDA-Public Use
  Company Number: GXKR2010GB03097

PATIENT
  Age: 70 Year
  Sex: Male

DRUGS (3)
  1. AMITRIPTYLINE (NGX) [Suspect]
     Route: 065
  2. PHENYTOIN [Concomitant]
     Indication: CONVULSION
     Route: 042
  3. SODIUM BICARBONATE [Concomitant]
     Route: 042

REACTIONS (11)
  - ACUTE RESPIRATORY DISTRESS SYNDROME [None]
  - DEPRESSED LEVEL OF CONSCIOUSNESS [None]
  - DYSPNOEA [None]
  - EXTENSOR PLANTAR RESPONSE [None]
  - GRAND MAL CONVULSION [None]
  - HYPERREFLEXIA [None]
  - HYPERTONIA [None]
  - HYPOTENSION [None]
  - HYPOXIA [None]
  - OVERDOSE [None]
  - RESPIRATORY FAILURE [None]
